FAERS Safety Report 14819111 (Version 1)
Quarter: 2018Q2

REPORT INFORMATION
  Report Type: Report from Study
  Country: US (occurrence: US)
  Receive Date: 20180427
  Receipt Date: 20180427
  Transmission Date: 20180711
  Serious: Yes (Hospitalization)
  Sender: FDA-Public Use
  Company Number: US-ASTRAZENECA-2018SE52906

PATIENT
  Age: 23166 Day
  Sex: Female

DRUGS (1)
  1. MEDI4736 [Suspect]
     Active Substance: DURVALUMAB
     Indication: ENDOMETRIAL CANCER
     Route: 041
     Dates: start: 20170308

REACTIONS (2)
  - Colitis [Unknown]
  - Rectal haemorrhage [Unknown]

NARRATIVE: CASE EVENT DATE: 20180417
